FAERS Safety Report 5306008-6 (Version None)
Quarter: 2007Q2

REPORT INFORMATION
  Report Type: 
  Country: None (occurrence: None)
  Receive Date: 20070424
  Receipt Date: 20070413
  Transmission Date: 20071010
  Serious: Yes (Hospitalization, Disabling)
  Sender: FDA-Public Use
  Company Number: US-ROCHE-479466

PATIENT
  Age: 21 Year
  Sex: Male
  Weight: 86.2 kg

DRUGS (2)
  1. ACCUTANE [Suspect]
     Route: 048
     Dates: start: 19900420, end: 19900508
  2. BACTRIM [Concomitant]

REACTIONS (15)
  - CLOSTRIDIAL INFECTION [None]
  - COLECTOMY [None]
  - COLITIS [None]
  - COLITIS ULCERATIVE [None]
  - DYSPHAGIA [None]
  - FISTULA [None]
  - GASTROENTERITIS [None]
  - HAEMORRHAGIC ANAEMIA [None]
  - ILEUS [None]
  - INFLAMMATORY BOWEL DISEASE [None]
  - INTESTINAL HAEMORRHAGE [None]
  - LARGE INTESTINE PERFORATION [None]
  - OESOPHAGEAL DISORDER [None]
  - PELVIC ABSCESS [None]
  - PSEUDOPOLYP [None]
